FAERS Safety Report 26160972 (Version 1)
Quarter: 2025Q4

REPORT INFORMATION
  Report Type: Spontaneous
  Country: US (occurrence: US)
  Receive Date: 20251216
  Receipt Date: 20251216
  Transmission Date: 20260117
  Serious: No
  Sender: ALVOGEN
  Company Number: US-ALVOGEN-2024095891

PATIENT
  Sex: Male

DRUGS (1)
  1. FENTANYL [Suspect]
     Active Substance: FENTANYL
     Indication: Product used for unknown indication
     Dosage: EXPIRATION DATE: APR-2027?SERIAL#152914953748?STRENGTH: 25 MCG/HR
     Route: 062

REACTIONS (4)
  - Withdrawal syndrome [Unknown]
  - Device adhesion issue [Unknown]
  - Device malfunction [Unknown]
  - Product administered at inappropriate site [Unknown]
